FAERS Safety Report 8090930-4 (Version None)
Quarter: 2012Q1

REPORT INFORMATION
  Report Type: 
  Country: None (occurrence: None)
  Receive Date: 20120128
  Receipt Date: 20110817
  Transmission Date: 20120608
  Serious: No
  Sender: FDA-Public Use
  Company Number: US-ABBOTT-11P-163-0842778-00

PATIENT
  Sex: Female

DRUGS (14)
  1. HYDROCHOLORTHIAZDE [Concomitant]
     Indication: HYPERTENSION
  2. CALCIUM [Concomitant]
     Indication: SUPPLEMENTATION THERAPY
  3. CLA [Concomitant]
     Indication: SUPPLEMENTATION THERAPY
  4. HUMIRA [Suspect]
     Indication: PSORIASIS
     Dates: start: 20101101
  5. SANCTURA [Concomitant]
     Indication: BLADDER DISORDER
  6. RESTASIS [Concomitant]
     Indication: DRY EYE
  7. MULTI-VITAMIN [Concomitant]
     Indication: SUPPLEMENTATION THERAPY
  8. ZOLPIDEM [Concomitant]
     Indication: INSOMNIA
     Dosage: AS NEEDED
  9. RAMIPRIL [Concomitant]
     Indication: HYPERTENSION
  10. COQ10 [Concomitant]
     Indication: SUPPLEMENTATION THERAPY
  11. NEXIUM [Concomitant]
     Indication: DYSPEPSIA
  12. LUTEIN [Concomitant]
     Indication: SUPPLEMENTATION THERAPY
  13. SYMVISC [Concomitant]
     Indication: OSTEOARTHRITIS
     Route: 050
  14. VITAMIN D [Concomitant]
     Indication: SUPPLEMENTATION THERAPY

REACTIONS (2)
  - INJECTION SITE PAIN [None]
  - RASH PAPULAR [None]
